FAERS Safety Report 7583289-X (Version None)
Quarter: 2011Q2

REPORT INFORMATION
  Report Type: 
  Country: None (occurrence: None)
  Receive Date: 20110627
  Receipt Date: 20110627
  Transmission Date: 20111010
  Serious: Yes (Hospitalization)
  Sender: FDA-Public Use
  Company Number: None

PATIENT
  Age: 48 Year
  Sex: Male

DRUGS (1)
  1. LITHIUM CARBONATE [Suspect]
     Dosage: 450 MG BID PO PRIOR TO ADMISSION
     Route: 048

REACTIONS (7)
  - VISUAL IMPAIRMENT [None]
  - TREATMENT NONCOMPLIANCE [None]
  - DELIRIUM [None]
  - ANXIETY [None]
  - ELECTROCARDIOGRAM ST-T CHANGE [None]
  - RENAL FAILURE ACUTE [None]
  - NEPHROGENIC DIABETES INSIPIDUS [None]
